FAERS Safety Report 19011648 (Version 3)
Quarter: 2022Q4

REPORT INFORMATION
  Report Type: Spontaneous
  Country: FR (occurrence: FR)
  Receive Date: 20210316
  Receipt Date: 20221013
  Transmission Date: 20230113
  Serious: Yes (Hospitalization)
  Sender: FDA-Public Use
  Company Number: None

PATIENT
  Age: 73 Year
  Sex: Male
  Weight: 51 kg

DRUGS (10)
  1. ATENOLOL [Suspect]
     Active Substance: ATENOLOL
     Indication: Hypertension
     Dosage: 50 MG
     Route: 048
  2. CEFTRIAXONE [Suspect]
     Active Substance: CEFTRIAXONE
     Indication: Sepsis
     Dosage: 1 GRAM
     Route: 042
     Dates: start: 20210212, end: 20210215
  3. AMOXICILLIN [Suspect]
     Active Substance: AMOXICILLIN
     Indication: Sepsis
     Dosage: 3 GRAM
     Dates: start: 20210204, end: 20210206
  4. AMOXICILLIN [Suspect]
     Active Substance: AMOXICILLIN
     Dates: start: 20210130, end: 20210204
  5. KARDEGIC [Suspect]
     Active Substance: ASPIRIN DL-LYSINE
     Indication: Platelet aggregation inhibition
     Dosage: 75 MG
     Route: 048
  6. OXAZEPAM [Suspect]
     Active Substance: OXAZEPAM
     Indication: Anxiety
     Dosage: 10 MG
     Route: 048
  7. POTASSIUM CHLORIDE [Suspect]
     Active Substance: POTASSIUM CHLORIDE
     Indication: Hypokalaemia
     Dosage: 1200 MG
     Route: 048
  8. SPIRAMYCIN [Suspect]
     Active Substance: SPIRAMYCIN
     Indication: Sepsis
     Dosage: 4.5 MU
     Route: 042
     Dates: start: 20210130, end: 20210203
  9. CLAVULANIC ACID [Suspect]
     Active Substance: CLAVULANIC ACID
     Indication: Sepsis
     Dosage: 600 MG
     Route: 042
     Dates: start: 20210130, end: 20210204
  10. CLAVULANIC ACID [Suspect]
     Active Substance: CLAVULANIC ACID
     Dosage: 375 MG
     Route: 048
     Dates: start: 20210204, end: 20210206

REACTIONS (1)
  - Purpura [Not Recovered/Not Resolved]

NARRATIVE: CASE EVENT DATE: 20210215
